FAERS Safety Report 5314817-2 (Version None)
Quarter: 2007Q2

REPORT INFORMATION
  Report Type: 
  Country: None (occurrence: None)
  Receive Date: 20070502
  Receipt Date: 20070417
  Transmission Date: 20071010
  Serious: Yes (Hospitalization)
  Sender: FDA-Public Use
  Company Number: FR-GENENTECH-240650

PATIENT
  Age: 67 Year
  Sex: Male
  Weight: 60 kg

DRUGS (14)
  1. AVASTIN [Suspect]
     Indication: COLORECTAL CANCER METASTATIC
     Dosage: 305 MG, UNK
     Route: 042
     Dates: start: 20061109
  2. AVASTIN [Suspect]
     Dosage: 152.5 MG, UNK
     Route: 042
     Dates: start: 20070215
  3. CAMPTOSAR [Suspect]
     Indication: COLORECTAL CANCER METASTATIC
     Dosage: 302 MG, UNK
     Route: 042
     Dates: start: 20061109
  4. CAMPTOSAR [Suspect]
     Dosage: 151 MG, UNK
     Route: 042
     Dates: start: 20070215
  5. FLUOROURACIL [Suspect]
     Indication: COLORECTAL CANCER METASTATIC
     Dosage: 672 MG, UNK
     Route: 042
     Dates: start: 20061109
  6. FLUOROURACIL [Suspect]
     Dosage: 1008 MG, UNK
     Route: 042
  7. FLUOROURACIL [Suspect]
     Dosage: 336 MG, UNK
     Route: 042
     Dates: start: 20070215
  8. FLUOROURACIL [Suspect]
     Dosage: 504 MG, UNK
     Route: 042
  9. ELVORINE [Suspect]
     Indication: COLORECTAL CANCER METASTATIC
     Dosage: 168 MG, UNK
     Route: 042
     Dates: start: 20061109
  10. ELVORINE [Suspect]
     Dosage: 84 MG, UNK
     Route: 042
     Dates: start: 20070215
  11. PROGRAF [Concomitant]
     Indication: DRUG USE FOR UNKNOWN INDICATION
     Dosage: UNK, UNK
  12. FENTANYL [Concomitant]
     Indication: DRUG USE FOR UNKNOWN INDICATION
     Dosage: UNK, UNK
  13. MORPHINE [Concomitant]
     Indication: DRUG USE FOR UNKNOWN INDICATION
     Dosage: UNK, UNK
  14. MIXTARD HUMAN 70/30 [Concomitant]
     Indication: DRUG USE FOR UNKNOWN INDICATION
     Dosage: UNK, UNK

REACTIONS (6)
  - ABDOMINAL PAIN [None]
  - CONFUSIONAL STATE [None]
  - DIARRHOEA [None]
  - DISORIENTATION [None]
  - RENAL FAILURE ACUTE [None]
  - VOMITING [None]
